FAERS Safety Report 6890044-2 (Version None)
Quarter: 2010Q3

REPORT INFORMATION
  Report Type: 
  Country: None (occurrence: None)
  Receive Date: 20100730
  Receipt Date: 20080725
  Transmission Date: 20110219
  Serious: No
  Sender: FDA-Public Use
  Company Number: US-PFIZER INC-2003111983

PATIENT
  Sex: Male
  Weight: 74.84 kg

DRUGS (9)
  1. LIPITOR [Suspect]
     Indication: BLOOD CHOLESTEROL
     Route: 048
     Dates: start: 20020101
  2. ATENOLOL [Concomitant]
     Route: 048
  3. UNIRETIC [Concomitant]
     Route: 048
  4. NIACIN [Concomitant]
     Route: 048
  5. ACETYLSALICYLIC ACID SRT [Concomitant]
     Route: 048
  6. MULTI-VITAMINS [Concomitant]
     Route: 048
  7. FLEXERIL [Concomitant]
     Indication: RESTLESS LEGS SYNDROME
  8. TAMSULOSIN HYDROCHLORIDE [Concomitant]
     Indication: BENIGN PROSTATIC HYPERPLASIA
  9. ANTIHYPERTENSIVES [Concomitant]

REACTIONS (3)
  - LIVER INJURY [None]
  - MUSCLE FATIGUE [None]
  - MYALGIA [None]
